FAERS Safety Report 24780403 (Version 1)
Quarter: 2024Q4

REPORT INFORMATION
  Report Type: Spontaneous
  Country: IT (occurrence: IT)
  Receive Date: 20241227
  Receipt Date: 20241227
  Transmission Date: 20250115
  Serious: Yes (Hospitalization, Other)
  Sender: AUROBINDO
  Company Number: IT-MINISAL02-1015898

PATIENT
  Age: 85 Year
  Sex: Female

DRUGS (13)
  1. CLOPIDOGREL BISULFATE [Suspect]
     Active Substance: CLOPIDOGREL BISULFATE
     Indication: Arterial thrombosis
     Dosage: 75 MILLIGRAM, ONCE A DAY (IN THE MORNING)
     Route: 048
  2. PANTOPRAZOLE SODIUM [Concomitant]
     Active Substance: PANTOPRAZOLE SODIUM
     Indication: Gastrooesophageal reflux disease
     Dosage: 20 MILLIGRAM, ONCE A DAY (IN THE MORNING)
     Route: 048
  3. PREDNISONE [Concomitant]
     Active Substance: PREDNISONE
     Indication: Gouty arthritis
     Dosage: 5 MILLIGRAM, ONCE A DAY (IN THE MORNING)
     Route: 048
  4. SODIUM BICARBONATE [Concomitant]
     Active Substance: SODIUM BICARBONATE
     Indication: Hyperchlorhydria
     Dosage: 500 MILLIGRAM, ONCE A DAY (IN THE MORNING)
     Route: 048
  5. BISOPROLOL FUMARATE [Concomitant]
     Active Substance: BISOPROLOL FUMARATE
     Indication: Hypertension
     Dosage: 2.5 MILLIGRAM, TWO TIMES A DAY
     Route: 048
  6. DIAMOX SEQUELS [Concomitant]
     Active Substance: ACETAZOLAMIDE
     Indication: Epilepsy
     Dosage: 250 MILLIGRAM
     Route: 048
  7. LASIX [Concomitant]
     Active Substance: FUROSEMIDE
     Indication: Renal failure
     Dosage: 500 MILLIGRAM, TWO TIMES A DAY (1/4 CP)
     Route: 048
  8. NITROGLYCERIN [Concomitant]
     Active Substance: NITROGLYCERIN
     Indication: Angina pectoris
     Dosage: 15 MILLIGRAM, ONCE A DAY
     Route: 062
  9. POTASSIUM CHLORIDE [Concomitant]
     Active Substance: POTASSIUM CHLORIDE
     Indication: Hypokalaemia
     Dosage: UNK
     Route: 048
  10. ALLOPURINOL [Concomitant]
     Active Substance: ALLOPURINOL
     Indication: Gout
     Dosage: 300 MILLIGRAM, ONCE A DAY (1/2 CP)
     Route: 048
  11. Luvion [Concomitant]
     Indication: Hypertension
     Dosage: 50 MILLIGRAM, ONCE A DAY
     Route: 048
  12. PHENOBARBITAL [Concomitant]
     Active Substance: PHENOBARBITAL
     Indication: Generalised tonic-clonic seizure
     Dosage: UNK
     Route: 048
  13. ROSUVASTATIN [Concomitant]
     Active Substance: ROSUVASTATIN
     Indication: Hypercholesterolaemia
     Dosage: UNK
     Route: 048

REACTIONS (2)
  - Rectal haemorrhage [Unknown]
  - Deficiency anaemia [Unknown]

NARRATIVE: CASE EVENT DATE: 20241130
